FAERS Safety Report 8547930-7 (Version None)
Quarter: 2012Q3

REPORT INFORMATION
  Report Type: 
  Country: None (occurrence: None)
  Receive Date: 20120728
  Receipt Date: 20101207
  Transmission Date: 20120928
  Serious: Yes (Other)
  Sender: FDA-Public Use
  Company Number: US-BAYER-201037706NA

PATIENT
  Sex: Female
  Weight: 97.506 kg

DRUGS (7)
  1. YAZ [Suspect]
     Indication: ACNE
  2. DROSPIRENONE AND ETHINYL ESTRADIOL [Suspect]
     Indication: ACNE
  3. TYLENOL [Concomitant]
  4. DILAUDID [Concomitant]
  5. ANTIBIOTICS [Concomitant]
     Indication: KIDNEY INFECTION
  6. YASMIN [Suspect]
     Indication: ACNE
     Dosage: UNK
     Dates: start: 20040101, end: 20070101
  7. OXYCONTIN [Concomitant]

REACTIONS (7)
  - ABDOMINAL PAIN UPPER [None]
  - NAUSEA [None]
  - BACK PAIN [None]
  - ABDOMINAL PAIN [None]
  - ABDOMINAL DISTENSION [None]
  - CHOLELITHIASIS [None]
  - CHOLECYSTITIS CHRONIC [None]
